FAERS Safety Report 18438632 (Version 2)
Quarter: 2020Q4

REPORT INFORMATION
  Report Type: Spontaneous
  Country: JP (occurrence: JP)
  Receive Date: 20201029
  Receipt Date: 20201113
  Transmission Date: 20210114
  Serious: Yes (Other)
  Sender: FDA-Public Use
  Company Number: JP-TAKEDA-2020TJP022365

PATIENT
  Age: 38 Year
  Sex: Male

DRUGS (4)
  1. LOXONIN [Concomitant]
     Active Substance: LOXOPROFEN SODIUM
     Dosage: UNK
     Route: 065
  2. TRINTELLIX [Suspect]
     Active Substance: VORTIOXETINE HYDROBROMIDE
     Indication: DEPRESSION
     Dosage: 10 MILLIGRAM
     Route: 048
     Dates: start: 20201003
  3. TRINTELLIX [Suspect]
     Active Substance: VORTIOXETINE HYDROBROMIDE
     Dosage: 20 MILLIGRAM
     Route: 048
     Dates: start: 20201010
  4. LYRICA [Concomitant]
     Active Substance: PREGABALIN
     Dosage: UNK
     Route: 065

REACTIONS (4)
  - Dysuria [Recovered/Resolved]
  - Haematuria [Recovered/Resolved]
  - Pollakiuria [Unknown]
  - Urinary retention [Unknown]

NARRATIVE: CASE EVENT DATE: 20201013
